FAERS Safety Report 4403975-X (Version None)
Quarter: 2004Q3

REPORT INFORMATION
  Report Type: 
  Country: None (occurrence: None)
  Receive Date: 20040719
  Receipt Date: 20040701
  Transmission Date: 20050211
  Serious: Yes (Other)
  Sender: FDA-Public Use
  Company Number: H-CH2004-06740

PATIENT
  Age: 33 Year
  Sex: Female
  Weight: 60 kg

DRUGS (9)
  1. TRACLEER [Suspect]
     Indication: PULMONARY HYPERTENSION
     Dosage: SEE IMAGE
     Route: 048
     Dates: start: 20040114, end: 20040207
  2. TRACLEER [Suspect]
     Indication: PULMONARY HYPERTENSION
     Dosage: SEE IMAGE
     Route: 048
     Dates: start: 20040208, end: 20040701
  3. MICROGYNON (ETHINYLESTRADIOL, LEVONORGESTREL) [Concomitant]
  4. SPIRONOLACTONE [Concomitant]
  5. ISOSORBIDE DINITRATE [Concomitant]
  6. ATENOLOL [Concomitant]
  7. FUROSEMIDE [Concomitant]
  8. ACETAMINOPHEN [Concomitant]
  9. DILTIAZEM HYDROCHLORIDE [Concomitant]

REACTIONS (4)
  - ABORTION SPONTANEOUS [None]
  - DRUG INEFFECTIVE [None]
  - PREGNANCY TEST NEGATIVE [None]
  - UNWANTED PREGNANCY [None]
